FAERS Safety Report 7742573-7 (Version None)
Quarter: 2011Q3

REPORT INFORMATION
  Report Type: 
  Country: None (occurrence: None)
  Receive Date: 20110902
  Receipt Date: 20110825
  Transmission Date: 20111222
  Serious: Yes (Congenital Anomaly)
  Sender: FDA-Public Use
  Company Number: 2011SP040612

PATIENT

DRUGS (1)
  1. MIRTAZAPINE [Suspect]
     Indication: PREGNANCY
     Dosage: TRPL
     Route: 064
     Dates: start: 20110701

REACTIONS (2)
  - MATERNAL DRUGS AFFECTING FOETUS [None]
  - CONGENITAL CHOROID PLEXUS CYST [None]
